FAERS Safety Report 5889625-4 (Version None)
Quarter: 2008Q3

REPORT INFORMATION
  Report Type: 
  Country: None (occurrence: None)
  Receive Date: 20080919
  Receipt Date: 20080910
  Transmission Date: 20090109
  Serious: Yes (Hospitalization)
  Sender: FDA-Public Use
  Company Number: B0536567A

PATIENT
  Age: 86 Year
  Sex: Female

DRUGS (1)
  1. ARIXTRA [Suspect]
     Indication: DRUG USE FOR UNKNOWN INDICATION
     Dosage: 2.5MG PER DAY
     Route: 058
     Dates: start: 20080602

REACTIONS (8)
  - DIVERTICULUM INTESTINAL [None]
  - GASTRITIS EROSIVE [None]
  - HYPOTENSION [None]
  - OVERDOSE [None]
  - RECTAL HAEMORRHAGE [None]
  - RED BLOOD CELL COUNT DECREASED [None]
  - ULCER [None]
  - VASOCONSTRICTION [None]
